FAERS Safety Report 8357254-9 (Version None)
Quarter: 2012Q2

REPORT INFORMATION
  Report Type: 
  Country: None (occurrence: None)
  Receive Date: 20120514
  Receipt Date: 20120507
  Transmission Date: 20120825
  Serious: Yes (Hospitalization)
  Sender: FDA-Public Use
  Company Number: PHHY2012FR040109

PATIENT
  Sex: Female

DRUGS (10)
  1. CLOZAPINE [Suspect]
     Dosage: 25 MG, QD
     Dates: start: 20120305, end: 20120405
  2. OXYBUTYNIN [Concomitant]
     Dosage: 2 DF, PER DAY
  3. VALSARTAN  AND HYDROCHLOROTHIAZIDE [Concomitant]
     Dosage: 160 MG/12.5 MG
  4. ACETAMINOPHEN [Concomitant]
     Dosage: UNK UKN, UNK
  5. ARICEPT [Concomitant]
     Dosage: 5 MG, UNK
  6. MOVIPREP [Concomitant]
     Dosage: UNK UKN, UNK
  7. OXAZEPAM [Concomitant]
     Dosage: 10 MG, UNK
  8. LEVOTHYROXINE SODIUM [Concomitant]
     Dosage: 50 UG, UNK
  9. ESCITALOPRAM [Concomitant]
     Dosage: 10 MG, PER DAY
  10. DOMPERIDONE [Concomitant]
     Dosage: 10 MG, UNK

REACTIONS (6)
  - HYPOTENSION [None]
  - OEDEMA PERIPHERAL [None]
  - LYMPHOPENIA [None]
  - GAIT DISTURBANCE [None]
  - CONDITION AGGRAVATED [None]
  - VISUAL IMPAIRMENT [None]
